FAERS Safety Report 5662560-2 (Version None)
Quarter: 2008Q1

REPORT INFORMATION
  Report Type: 
  Country: None (occurrence: None)
  Receive Date: 20080215
  Receipt Date: 20070831
  Transmission Date: 20080703
  Serious: Yes (Other)
  Sender: FDA-Public Use
  Company Number: 2007BH007461

PATIENT
  Age: 74 Year
  Sex: Male
  Weight: 117.9352 kg

DRUGS (1)
  1. EXTRANEAL [Suspect]
     Indication: RENAL DISORDER
     Dosage: IP
     Route: 033

REACTIONS (2)
  - DEVICE LEAKAGE [None]
  - PERITONITIS BACTERIAL [None]
